FAERS Safety Report 21402703 (Version 1)
Quarter: 2022Q4

REPORT INFORMATION
  Report Type: Spontaneous
  Country: US (occurrence: US)
  Receive Date: 20221003
  Receipt Date: 20221003
  Transmission Date: 20230113
  Serious: No
  Sender: FDA-Public Use
  Company Number: US-PFIZER INC-202201196463

PATIENT

DRUGS (1)
  1. BENZONATATE [Suspect]
     Active Substance: BENZONATATE
     Indication: Cough
     Dosage: 200 MG (TWO TIMES A DAY, YOU TAKE THAT THREE TIMES A DAY IF NEEDED)

REACTIONS (4)
  - Feeling abnormal [Unknown]
  - Speech disorder [Unknown]
  - Intentional product use issue [Unknown]
  - Off label use [Unknown]

NARRATIVE: CASE EVENT DATE: 20220901
